FAERS Safety Report 15917744 (Version 1)
Quarter: 2019Q1

REPORT INFORMATION
  Report Type: Spontaneous
  Country: US (occurrence: US)
  Receive Date: 20190205
  Receipt Date: 20190205
  Transmission Date: 20190417
  Serious: No
  Sender: FDA-Public Use
  Company Number: US-PFIZER INC-2019047319

PATIENT
  Age: 13 Year
  Sex: Male

DRUGS (1)
  1. GENOTROPIN [Suspect]
     Active Substance: SOMATROPIN
     Dosage: 2.4 MG, UNK (6 DAYS A WEEK)
     Dates: start: 20180223

REACTIONS (5)
  - Blood glucose increased [Unknown]
  - Insulin-like growth factor increased [Unknown]
  - Bone density increased [Unknown]
  - Neutrophil count decreased [Unknown]
  - Blood potassium increased [Unknown]

NARRATIVE: CASE EVENT DATE: 20181205
